FAERS Safety Report 4795085-7 (Version None)
Quarter: 2005Q4

REPORT INFORMATION
  Report Type: 
  Country: None (occurrence: None)
  Receive Date: 20051007
  Receipt Date: 20051007
  Transmission Date: 20060501
  Serious: No
  Sender: FDA-Public Use
  Company Number: None

PATIENT
  Age: 55 Year
  Sex: Male
  Weight: 96.8 kg

DRUGS (1)
  1. DOXYCYCLINE [Suspect]
     Indication: SINUSITIS
     Dosage: 100MG BID PO
     Route: 048
     Dates: start: 20050920, end: 20050920

REACTIONS (1)
  - DRUG HYPERSENSITIVITY [None]
